FAERS Safety Report 11381133 (Version 3)
Quarter: 2015Q4

REPORT INFORMATION
  Report Type: Report from Study
  Country: JP (occurrence: JP)
  Receive Date: 20150814
  Receipt Date: 20151211
  Transmission Date: 20160304
  Serious: Yes (Other)
  Sender: FDA-Public Use
  Company Number: JP-OTSUKA-2015_007138

PATIENT

DRUGS (24)
  1. TOLVAPTAN [Suspect]
     Active Substance: TOLVAPTAN
     Indication: FLUID RETENTION
     Dosage: 3.75 MG, QD, IN THE MORNING
     Route: 048
     Dates: start: 20150128
  2. MUCOSTA TABLETS 100MG [Concomitant]
     Indication: PYREXIA
     Dosage: 100 MG, DAILY DOSE
     Route: 048
     Dates: start: 20150203, end: 20150209
  3. EURAX [Concomitant]
     Active Substance: CROTAMITON
     Indication: PRURITUS
     Dosage: 0.5 G, DAILY DOSE
     Route: 061
     Dates: start: 20150219, end: 20150304
  4. DIART [Suspect]
     Active Substance: AZOSEMIDE
     Dosage: 30 MG, DAILY DOSE
     Route: 048
     Dates: start: 20150218
  5. AMINOLEBAN EN POWDER [Concomitant]
     Active Substance: AMINO ACIDS
     Indication: PRODUCT USED FOR UNKNOWN INDICATION
     Dosage: 50 G, DAILY DOSE
     Route: 048
     Dates: start: 20150205
  6. PARIET [Concomitant]
     Active Substance: RABEPRAZOLE SODIUM
     Indication: PROPHYLAXIS
     Dosage: 10 MG/DAY
     Route: 048
     Dates: start: 20150121, end: 20150127
  7. ISOLEUCINE W/LEUCINE/VALINE [Concomitant]
     Active Substance: ISOLEUCINE\LEUCINE\VALINE
     Indication: PRODUCT USED FOR UNKNOWN INDICATION
     Dosage: 12.45 G/DAY
     Route: 048
     Dates: start: 20150121, end: 20150127
  8. FERROUS CITRATE [Concomitant]
     Active Substance: FERROUS CITRATE
     Indication: PRODUCT USED FOR UNKNOWN INDICATION
     Dosage: 100 MG/DAY
     Route: 048
     Dates: start: 20150121, end: 20150211
  9. GLUFAST [Concomitant]
     Active Substance: MITIGLINIDE
     Indication: PRODUCT USED FOR UNKNOWN INDICATION
     Dosage: 30 MG/DAY
     Route: 048
     Dates: start: 20150202
  10. LOXOPROFEN SODIUM [Concomitant]
     Active Substance: LOXOPROFEN SODIUM
     Indication: PYREXIA
     Dosage: 60 MG, DAILY DOSE
     Route: 048
     Dates: start: 20150203, end: 20150209
  11. LOXOPROFEN SODIUM [Concomitant]
     Active Substance: LOXOPROFEN SODIUM
     Indication: MYALGIA
     Dosage: 1 DF, DAILY DOSE
     Route: 061
     Dates: start: 20150206, end: 20150218
  12. URSO S [Concomitant]
     Indication: PRODUCT USED FOR UNKNOWN INDICATION
     Dosage: 600 MG/DAY
     Route: 048
     Dates: start: 20150121
  13. AMINOLEBAN [Concomitant]
     Active Substance: AMINO ACIDS
     Indication: PRODUCT USED FOR UNKNOWN INDICATION
     Dosage: 200 ML, DAILY DOSE
     Route: 041
     Dates: start: 20150127, end: 20150209
  14. LASIX M [Concomitant]
     Active Substance: FUROSEMIDE
     Indication: FLUID RETENTION
     Dosage: 40 MG/DAY
     Route: 048
     Dates: start: 20150121, end: 20150127
  15. NEXIUM [Concomitant]
     Active Substance: ESOMEPRAZOLE MAGNESIUM
     Indication: PROPHYLAXIS
     Dosage: 20 MG/DAY
     Route: 048
     Dates: start: 20150128
  16. SENNOSIDE A+B CALCIUM [Concomitant]
     Active Substance: SENNOSIDES A AND B
     Indication: CONSTIPATION
     Dosage: 24 MG, DAILY DOSE
     Route: 048
     Dates: start: 20150219, end: 20150225
  17. HUMULIN R [Concomitant]
     Active Substance: INSULIN HUMAN
     Indication: PRODUCT USED FOR UNKNOWN INDICATION
     Dosage: 9 IU/DAY
     Route: 058
     Dates: start: 20150127, end: 20150201
  18. LAGNOS [Concomitant]
     Indication: AMMONIA INCREASED
     Dosage: 48.15 G, DAILY DOSE
     Route: 048
     Dates: start: 20150128
  19. HYDROXYZINE HYDROCHLORIDE. [Concomitant]
     Active Substance: HYDROXYZINE HYDROCHLORIDE
     Indication: PRURITUS
     Dosage: 20 MG, DAILY DOSE
     Route: 048
     Dates: start: 20150219, end: 20150225
  20. EQUA [Concomitant]
     Active Substance: VILDAGLIPTIN
     Indication: PRODUCT USED FOR UNKNOWN INDICATION
     Dosage: 100 MG/DAY
     Route: 048
     Dates: start: 20150202
  21. DIART [Suspect]
     Active Substance: AZOSEMIDE
     Indication: FLUID RETENTION
     Dosage: 60 MG, DAILY DOSE
     Route: 048
     Dates: start: 20150128, end: 20150216
  22. ALDACTONE A [Concomitant]
     Active Substance: SPIRONOLACTONE
     Indication: FLUID RETENTION
     Dosage: 50 MG/DAY
     Route: 048
     Dates: start: 20150121, end: 20150216
  23. ISOLEUCINE W/LEUCINE/VALINE [Concomitant]
     Active Substance: ISOLEUCINE\LEUCINE\VALINE
     Indication: PRODUCT USED FOR UNKNOWN INDICATION
     Dosage: 60 G/DAY
     Route: 048
     Dates: start: 20150128
  24. VENAPASTA [Concomitant]
     Indication: PRURITUS
     Dosage: 0.5 G, DAILY DOSE
     Route: 061
     Dates: start: 20150202, end: 20150218

REACTIONS (8)
  - Blood urea increased [Not Recovered/Not Resolved]
  - Pyrexia [Recovered/Resolved]
  - Pruritus [Recovered/Resolved]
  - Thirst [Recovered/Resolved]
  - Myalgia [Recovered/Resolved]
  - Ammonia increased [Recovered/Resolved]
  - Constipation [Recovered/Resolved]
  - Platelet count decreased [Not Recovered/Not Resolved]

NARRATIVE: CASE EVENT DATE: 20150128
